FAERS Safety Report 8094595-7 (Version None)
Quarter: 2012Q1

REPORT INFORMATION
  Report Type: 
  Country: None (occurrence: None)
  Receive Date: 20120131
  Receipt Date: 20120126
  Transmission Date: 20120608
  Serious: Yes (Hospitalization)
  Sender: FDA-Public Use
  Company Number: IT-BAYER-2011-113465

PATIENT
  Age: 51 Year
  Sex: Female
  Weight: 50.1 kg

DRUGS (2)
  1. PAROXETINE HYDROCHLORIDE [Concomitant]
     Indication: DEPRESSION
     Dosage: DAILY DOSE 10 MG
     Route: 048
  2. SORAFENIB (RAF KINASE INHIBITOR) [Suspect]
     Indication: METASTATIC SALIVARY GLAND CANCER
     Dosage: 400 MG, BID
     Route: 048
     Dates: start: 20111014, end: 20111118

REACTIONS (4)
  - PYREXIA [None]
  - STOMATITIS [None]
  - ACUTE FEBRILE NEUTROPHILIC DERMATOSIS [None]
  - ERYTHEMA NODOSUM [None]
